FAERS Safety Report 9353009 (Version 2)
Quarter: 2013Q3

REPORT INFORMATION
  Report Type: Spontaneous
  Country: US (occurrence: US)
  Receive Date: 20130618
  Receipt Date: 20130826
  Transmission Date: 20140515
  Serious: Yes (Other)
  Sender: FDA-Public Use
  Company Number: US-SANOFI-AVENTIS-2013SA059361

PATIENT
  Age: 75 Year
  Sex: Male

DRUGS (2)
  1. LANTUS SOLOSTAR [Suspect]
     Indication: TYPE 1 DIABETES MELLITUS
     Dosage: TAKEN FROM: FEW MONTHS AGO?DOSE: 12 AM/6 PM
     Route: 051
  2. SOLOSTAR [Concomitant]
     Dosage: TAKEN FROM: FEW MONTHS AGO

REACTIONS (6)
  - Blindness [Unknown]
  - Glaucoma [Not Recovered/Not Resolved]
  - Visual impairment [Not Recovered/Not Resolved]
  - Cataract [Not Recovered/Not Resolved]
  - Muscular weakness [Unknown]
  - Extra dose administered [Unknown]
